FAERS Safety Report 21211953 (Version 1)
Quarter: 2022Q3

REPORT INFORMATION
  Report Type: Spontaneous
  Country: FR (occurrence: FR)
  Receive Date: 20220815
  Receipt Date: 20220815
  Transmission Date: 20221027
  Serious: Yes (Other)
  Sender: FDA-Public Use
  Company Number: None

PATIENT
  Age: 19 Year
  Sex: Female

DRUGS (3)
  1. XANAX [Suspect]
     Active Substance: ALPRAZOLAM
     Dosage: 0.5 MG, DAILY
     Route: 048
     Dates: start: 20210731, end: 20210731
  2. BROMAZEPAM [Suspect]
     Active Substance: BROMAZEPAM
     Dosage: 150 MG, DAILY, 25 TABLETS BETWEEN 4:30 P.M. AND 9 P.M.
     Route: 048
     Dates: start: 20210731, end: 20210731
  3. CANNABIS SATIVA SUBSP. INDICA TOP [Suspect]
     Active Substance: CANNABIS SATIVA SUBSP. INDICA TOP
     Dosage: 25 DF, DAILY, 2 JOINTS PER DAY CURRENTLY, TO CONSUME UP TO 25 JOINTS/DAY
     Route: 055

REACTIONS (4)
  - Drug abuse [Not Recovered/Not Resolved]
  - Toxicity to various agents [Recovered/Resolved]
  - Hypokinesia [Recovered/Resolved]
  - Bradyphrenia [Recovered/Resolved]

NARRATIVE: CASE EVENT DATE: 20210731
